FAERS Safety Report 4446494-7 (Version None)
Quarter: 2004Q3

REPORT INFORMATION
  Report Type: 
  Country: None (occurrence: None)
  Receive Date: 20040902
  Receipt Date: 20040818
  Transmission Date: 20050211
  Serious: Yes (Death)
  Sender: FDA-Public Use
  Company Number: DEU-2004-0000844

PATIENT
  Age: 24 Year
  Sex: Male

DRUGS (5)
  1. MORPHINE SULFATE [Suspect]
     Indication: DRUG USE FOR UNKNOWN INDICATION
     Dosage: ORAL
     Route: 048
  2. METHADONE HCL [Suspect]
     Indication: POLYSUBSTANCE DEPENDENCE
     Dosage: 50 MG, DAILY, ORAL
     Route: 048
     Dates: start: 20040320
  3. OXAZEPAM [Suspect]
     Indication: POLYSUBSTANCE DEPENDENCE
     Dosage: 50 MG DAILY, ORAL
     Route: 048
     Dates: start: 20040320
  4. NORDAZEPAM [Suspect]
  5. CANNABIS [Concomitant]

REACTIONS (15)
  - ALCOHOL USE [None]
  - APNOEA [None]
  - BRAIN OEDEMA [None]
  - CARDIAC ARREST [None]
  - COMA [None]
  - DIZZINESS [None]
  - DYSPNOEA [None]
  - FEELING ABNORMAL [None]
  - OVERDOSE [None]
  - POLYSUBSTANCE ABUSE [None]
  - PULMONARY OEDEMA [None]
  - PUPILLARY REFLEX IMPAIRED [None]
  - TOXICOLOGIC TEST ABNORMAL [None]
  - VOMITING [None]
  - WHEEZING [None]
